FAERS Safety Report 5754084-9 (Version None)
Quarter: 2008Q2

REPORT INFORMATION
  Report Type: 
  Country: None (occurrence: None)
  Receive Date: 20080530
  Receipt Date: 20080523
  Transmission Date: 20081010
  Serious: Yes (Hospitalization, Other)
  Sender: FDA-Public Use
  Company Number: PHRM2007FR01743

PATIENT
  Age: 79 Year
  Sex: Female

DRUGS (11)
  1. TEGRETOL [Suspect]
     Indication: EPILEPSY
     Dosage: 1200 MG/DAY
     Route: 048
     Dates: end: 20070520
  2. PROPOFAN ^AVENTIS^ [Interacting]
     Route: 048
     Dates: start: 20070518, end: 20070520
  3. ALEPSAL [Concomitant]
     Indication: EPILEPSY
     Dosage: 65 MG/DAY
     Route: 048
  4. ASPIRIN [Concomitant]
     Dosage: 75 MG, QD
     Route: 048
  5. PLAVIX [Concomitant]
     Dosage: 75 MG, QD
     Route: 048
  6. NOROXIN [Concomitant]
     Dosage: 400 MG, QD
     Route: 048
  7. ESOMEPRAZOLE [Concomitant]
     Dosage: 20 MG, QD
     Route: 048
  8. LASILIX [Concomitant]
     Dosage: 40 MG, QD
     Route: 048
  9. ALDACTONE [Concomitant]
     Dosage: 25 MG, QD
     Route: 048
  10. COVERSYL /FRA/ [Concomitant]
     Dosage: 1 DF, QD
     Route: 048
  11. SECTRAL [Concomitant]
     Dosage: 200 MG, QD
     Route: 048

REACTIONS (18)
  - ANAEMIA [None]
  - ANTICONVULSANT DRUG LEVEL ABOVE THERAPEUTIC [None]
  - BLOOD CREATININE INCREASED [None]
  - BLOOD POTASSIUM DECREASED [None]
  - CEREBRAL ATROPHY [None]
  - DIZZINESS [None]
  - DRUG TOXICITY [None]
  - ELECTROENCEPHALOGRAM ABNORMAL [None]
  - FALL [None]
  - HAEMOGLOBIN DECREASED [None]
  - METABOLIC DISORDER [None]
  - NAUSEA [None]
  - NEUTROPENIA [None]
  - NEUTROPHIL COUNT DECREASED [None]
  - RED BLOOD CELL COUNT DECREASED [None]
  - SCAN ABNORMAL [None]
  - VOMITING [None]
  - WHITE BLOOD CELL COUNT DECREASED [None]
